FAERS Safety Report 11456167 (Version 3)
Quarter: 2017Q4

REPORT INFORMATION
  Report Type: Report from Study
  Country: None (occurrence: US)
  Receive Date: 20150903
  Receipt Date: 20171211
  Transmission Date: 20180320
  Serious: Yes (Hospitalization, Other)
  Sender: FDA-Public Use
  Company Number: US-ABBVIE-15K-163-1453819-00

PATIENT
  Age: 49 Year
  Sex: Female

DRUGS (1)
  1. HUMIRA [Suspect]
     Active Substance: ADALIMUMAB
     Indication: PSORIATIC ARTHROPATHY
     Route: 065
     Dates: start: 20130806, end: 20150416

REACTIONS (24)
  - Rash macular [Unknown]
  - Blood pressure decreased [Unknown]
  - Staphylococcal infection [Unknown]
  - Sepsis [Unknown]
  - Necrotising fasciitis [Not Recovered/Not Resolved]
  - Pyrexia [Unknown]
  - Nerve injury [Not Recovered/Not Resolved]
  - Blister [Not Recovered/Not Resolved]
  - Pyrexia [Unknown]
  - Dysstasia [Unknown]
  - Chills [Unknown]
  - Skin graft detachment [Unknown]
  - Anxiety [Unknown]
  - Rash [Unknown]
  - Infection transmission via personal contact [Unknown]
  - Wound infection staphylococcal [Unknown]
  - Joint range of motion decreased [Unknown]
  - Hyperhidrosis [Unknown]
  - Malaise [Recovered/Resolved]
  - Pain in extremity [Recovered/Resolved]
  - Clostridium difficile infection [Recovering/Resolving]
  - Fungal skin infection [Unknown]
  - Cellulitis [Recovering/Resolving]
  - Weight bearing difficulty [Recovered/Resolved]

NARRATIVE: CASE EVENT DATE: 2015
